FAERS Safety Report 4742053-7 (Version None)
Quarter: 2005Q3

REPORT INFORMATION
  Report Type: 
  Country: None (occurrence: None)
  Receive Date: 20050804
  Receipt Date: 20050429
  Transmission Date: 20060218
  Serious: No
  Sender: FDA-Public Use
  Company Number: FACT0500411

PATIENT
  Age: 35 Year
  Sex: Female
  Weight: 53.1 kg

DRUGS (5)
  1. FACTIVE [Suspect]
     Indication: RESPIRATORY TRACT INFECTION BACTERIAL
     Dosage: 320 MG, QD, ORAL;  320 MG, QD, ORAL
     Route: 048
     Dates: start: 20050427, end: 20050427
  2. FACTIVE [Suspect]
     Indication: RESPIRATORY TRACT INFECTION BACTERIAL
     Dosage: 320 MG, QD, ORAL;  320 MG, QD, ORAL
     Route: 048
  3. ADVAIR (FLUTICASONE PROPIONATE, SALMETEROL XINAFOATE) [Concomitant]
  4. NECON (ETHINYLESTRADIOL, NORETHISTERONE) [Concomitant]
  5. HYDROCODONE (HYDROCODONE) [Concomitant]

REACTIONS (1)
  - RASH GENERALISED [None]
